FAERS Safety Report 26009297 (Version 1)
Quarter: 2025Q4

REPORT INFORMATION
  Report Type: Spontaneous
  Country: CN (occurrence: CN)
  Receive Date: 20251107
  Receipt Date: 20251107
  Transmission Date: 20260117
  Serious: Yes (Other)
  Sender: ALEXION PHARMACEUTICALS
  Company Number: CN-ASTRAZENECA-202511CHN000129CN

PATIENT
  Age: 84 Year
  Sex: Female
  Weight: 37 kg

DRUGS (1)
  1. TAGRISSO [Suspect]
     Active Substance: OSIMERTINIB
     Indication: Neoplasm
     Dosage: 80.000000 MILLIGRAM,1 TIMES 1 DAY

REACTIONS (1)
  - Myocardial injury [Recovering/Resolving]

NARRATIVE: CASE EVENT DATE: 20251021
